FAERS Safety Report 22060988 (Version 1)
Quarter: 2023Q1

REPORT INFORMATION
  Report Type: Spontaneous
  Country: US (occurrence: US)
  Receive Date: 20230303
  Receipt Date: 20230303
  Transmission Date: 20230418
  Serious: Yes (Death, Other)
  Sender: FDA-Public Use
  Company Number: US-PAIPHARMA-2023-US-005079

PATIENT
  Age: 2 Year
  Sex: Female

DRUGS (1)
  1. LACTULOSE [Suspect]
     Active Substance: LACTULOSE
     Indication: Product used for unknown indication
     Dosage: 75 GRAMS

REACTIONS (10)
  - Respiratory depression [Fatal]
  - Metabolic acidosis [Fatal]
  - Osmolar gap abnormal [Fatal]
  - Medication error [Fatal]
  - Depressed level of consciousness [Fatal]
  - Seizure [Fatal]
  - Hypernatraemia [Fatal]
  - Hyperglycaemia [Fatal]
  - Hypotension [Fatal]
  - Tachycardia [Fatal]
